FAERS Safety Report 4559475-X (Version None)
Quarter: 2005Q1

REPORT INFORMATION
  Report Type: 
  Country: None (occurrence: None)
  Receive Date: 20050119
  Receipt Date: 20050110
  Transmission Date: 20050727
  Serious: Yes (Hospitalization)
  Sender: FDA-Public Use
  Company Number: 2005009653

PATIENT
  Age: 70 Year
  Sex: Female

DRUGS (6)
  1. ALDACTONE [Suspect]
     Indication: ILL-DEFINED DISORDER
     Dosage: 37.5 MG (75, EVERY DAY), ORAL
     Route: 048
  2. HYDROCHLOROTHIAZIDE [Suspect]
     Indication: ILL-DEFINED DISORDER
     Dosage: 12.5 MG (EVERY DAY), ORAL
     Route: 048
  3. ACENOCOUMAROL (ACENOCOUMAROL) [Suspect]
     Indication: ILL-DEFINED DISORDER
     Dosage: ORAL
     Route: 048
  4. BUMETANIDE [Suspect]
     Indication: ILL-DEFINED DISORDER
     Dosage: 12.5 MG (EVERY DAY), ORAL
     Route: 048
  5. HYDROXYZINE [Concomitant]
  6. POTASSIUM CHLORIDE [Concomitant]

REACTIONS (11)
  - ASTHENIA [None]
  - BLOOD CREATININE INCREASED [None]
  - DEHYDRATION [None]
  - DIARRHOEA [None]
  - HYPOCHLORAEMIA [None]
  - HYPOCOAGULABLE STATE [None]
  - HYPOKALAEMIA [None]
  - HYPONATRAEMIA [None]
  - INTERNATIONAL NORMALISED RATIO INCREASED [None]
  - NAUSEA [None]
  - SOMNOLENCE [None]
